FAERS Safety Report 13921866 (Version 1)
Quarter: 2017Q3

REPORT INFORMATION
  Report Type: Spontaneous
  Country: ES (occurrence: ES)
  Receive Date: 20170830
  Receipt Date: 20170830
  Transmission Date: 20171127
  Serious: Yes (Other)
  Sender: FDA-Public Use
  Company Number: ES-JNJFOC-20170826845

PATIENT
  Age: 36 Year
  Sex: Female
  Weight: 65 kg

DRUGS (6)
  1. BESITRAN [Suspect]
     Active Substance: SERTRALINE HYDROCHLORIDE
     Indication: DEPRESSION
     Route: 048
     Dates: start: 2015
  2. ORFIDAL [Suspect]
     Active Substance: LORAZEPAM
     Indication: DEPRESSION
     Route: 048
  3. ZALDIAR [Suspect]
     Active Substance: ACETAMINOPHEN\TRAMADOL HYDROCHLORIDE
     Indication: FIBROMYALGIA
     Route: 048
     Dates: start: 20170810
  4. ORFIDAL [Suspect]
     Active Substance: LORAZEPAM
     Indication: ANXIETY
     Route: 048
  5. BESITRAN [Suspect]
     Active Substance: SERTRALINE HYDROCHLORIDE
     Indication: ANXIETY
     Route: 048
     Dates: start: 2015
  6. JAYDESS [Suspect]
     Active Substance: LEVONORGESTREL
     Indication: PRODUCT USED FOR UNKNOWN INDICATION
     Route: 015
     Dates: start: 201704

REACTIONS (4)
  - Coordination abnormal [Recovering/Resolving]
  - Nightmare [Recovering/Resolving]
  - Hallucination [Recovering/Resolving]
  - Somnolence [Recovering/Resolving]

NARRATIVE: CASE EVENT DATE: 20170811
